FAERS Safety Report 9289531 (Version 2)
Quarter: 2013Q2

REPORT INFORMATION
  Report Type: Spontaneous
  Country: GB (occurrence: GB)
  Receive Date: 20130515
  Receipt Date: 20130515
  Transmission Date: 20140414
  Serious: Yes (Hospitalization)
  Sender: FDA-Public Use
  Company Number: GB-INDICUS PHARMA-000084

PATIENT
  Age: 49 Year
  Sex: Female

DRUGS (4)
  1. METFORMIN HYDROCHLORIDE [Suspect]
     Indication: PRODUCT USED FOR UNKNOWN INDICATION
  2. BENDROFLUMETHIAZIDE [Concomitant]
  3. LOSARTAN [Suspect]
     Indication: PRODUCT USED FOR UNKNOWN INDICATION
  4. ATENOLOL [Concomitant]

REACTIONS (6)
  - Lactic acidosis [Recovered/Resolved]
  - Dyspnoea [Recovered/Resolved]
  - Pulmonary oedema [Recovered/Resolved]
  - Renal failure acute [Recovered/Resolved]
  - Hypotension [None]
  - Hypoxia [None]
